FAERS Safety Report 7027563-4 (Version None)
Quarter: 2010Q4

REPORT INFORMATION
  Report Type: 
  Country: None (occurrence: None)
  Receive Date: 20101004
  Receipt Date: 20100820
  Transmission Date: 20110411
  Serious: Yes (Death, Hospitalization, Other)
  Sender: FDA-Public Use
  Company Number: US-BAXTER-2010BH023822

PATIENT
  Age: 47 Year
  Sex: Male

DRUGS (26)
  1. HEPARIN SODIUM INJECTION [Suspect]
     Indication: HAEMODIALYSIS
     Route: 058
     Dates: start: 20070530, end: 20070530
  2. HEPARIN SODIUM INJECTION [Suspect]
     Route: 058
     Dates: start: 20070604, end: 20070604
  3. HEPARIN SODIUM INJECTION [Suspect]
     Route: 058
     Dates: start: 20070606, end: 20070606
  4. HEPARIN SODIUM INJECTION [Suspect]
     Route: 058
     Dates: start: 20070608, end: 20070608
  5. HEPARIN SODIUM INJECTION [Suspect]
     Route: 058
     Dates: start: 20070611, end: 20070611
  6. HEPARIN SODIUM INJECTION [Suspect]
     Route: 058
     Dates: start: 20070617, end: 20070617
  7. HEPARIN SODIUM INJECTION [Suspect]
     Route: 058
     Dates: start: 20070618, end: 20070618
  8. ASPIRIN [Concomitant]
     Indication: PROPHYLAXIS
     Route: 065
  9. AZITHROMYCIN [Concomitant]
     Indication: PRODUCT USED FOR UNKNOWN INDICATION
     Route: 048
  10. CALCIUM CARBONATE [Concomitant]
     Indication: OSTEOPOROSIS PROPHYLAXIS
     Route: 048
  11. CAPSAICIN [Concomitant]
     Indication: PRODUCT USED FOR UNKNOWN INDICATION
     Route: 065
  12. CIPROFLOXACIN [Concomitant]
     Indication: PRODUCT USED FOR UNKNOWN INDICATION
     Route: 065
  13. COLCHICINE [Concomitant]
     Indication: GOUT
     Route: 048
  14. FELODIPINE [Concomitant]
     Indication: BLOOD PRESSURE
     Route: 065
  15. FLUCONAZOLE [Concomitant]
     Indication: FUNGAL INFECTION
     Route: 065
  16. GLYBURIDE [Concomitant]
     Indication: DIABETES MELLITUS
     Route: 048
  17. LEVALBUTEROL HYDROCHLORIDE [Concomitant]
     Indication: PRODUCT USED FOR UNKNOWN INDICATION
     Route: 055
  18. LISINOPRIL [Concomitant]
     Indication: BLOOD PRESSURE
     Route: 065
  19. LOPERAMIDE [Concomitant]
     Indication: PRODUCT USED FOR UNKNOWN INDICATION
     Route: 065
  20. METOPROLOL TARTRATE [Concomitant]
     Indication: CARDIAC DISORDER
     Route: 048
  21. PYRIDOXIN [Concomitant]
     Indication: PRODUCT USED FOR UNKNOWN INDICATION
     Route: 065
  22. RIFABUTIN [Concomitant]
     Indication: INFECTION
     Route: 048
  23. OXYCODONE [Concomitant]
     Indication: PAIN
     Route: 048
  24. THIAMINE HYDROCHLORIDE [Concomitant]
     Indication: MEDICAL DIET
     Route: 048
  25. MULTI-VITAMINS [Concomitant]
     Indication: MEDICAL DIET
     Route: 065
  26. MECLIZINE [Concomitant]
     Indication: NAUSEA
     Route: 048

REACTIONS (12)
  - ASTHENIA [None]
  - DYSPNOEA [None]
  - FLUID OVERLOAD [None]
  - IMMUNOSUPPRESSION [None]
  - LUNG INFECTION [None]
  - MYCOBACTERIUM AVIUM COMPLEX INFECTION [None]
  - NAUSEA [None]
  - PLEURAL EFFUSION [None]
  - PNEUMOTHORAX [None]
  - PYREXIA [None]
  - RENAL TRANSPLANT [None]
  - RESPIRATORY ARREST [None]
